FAERS Safety Report 8065857-4 (Version None)
Quarter: 2012Q1

REPORT INFORMATION
  Report Type: 
  Country: None (occurrence: None)
  Receive Date: 20120117
  Receipt Date: 20120102
  Transmission Date: 20120608
  Serious: Yes (Hospitalization)
  Sender: FDA-Public Use
  Company Number: 2012CP000005

PATIENT
  Age: 77 Year
  Sex: Female

DRUGS (14)
  1. FLUINDIONE [Concomitant]
  2. ZOLOFT [Suspect]
     Indication: DEPRESSION
     Dosage: 50 MG; 1 DAY; PO
     Route: 048
     Dates: start: 20111110, end: 20111116
  3. ACETYLLEUCINE [Concomitant]
  4. PERINDOPRIL ERBUMINE [Suspect]
     Indication: HYPERTENSION
     Dosage: 5 MG; 1 DAY; PO
     Route: 048
     Dates: start: 20111110, end: 20111116
  5. FUROSEMIDE [Concomitant]
  6. PERINDOPRIL ERBUMINE [Concomitant]
  7. ACETAMINOPHEN [Suspect]
     Dosage: 1 GRAM; 1 DAY: IV
     Route: 042
     Dates: start: 20111110, end: 20111116
  8. TRAMADOL HCL [Concomitant]
  9. LOXEN [Concomitant]
  10. LOVENOX [Suspect]
     Indication: THROMBOSIS PROPHYLAXIS
     Dosage: .7 ML; 2/1 DAY;SC
     Route: 058
     Dates: start: 20111110, end: 20111116
  11. VITAMINS /90003601/) [Concomitant]
  12. SERTRALINE HYDROCHLORIDE [Concomitant]
  13. TRAMADOL HYDROHLORIDE [Suspect]
     Dosage: 100 MG; 2/1 DAY; PO
     Route: 048
     Dates: start: 20111110, end: 20111116
  14. RISPERDAL [Suspect]
     Dosage: 1 MG; 1 DAY; PO
     Route: 048

REACTIONS (7)
  - SHOCK HAEMORRHAGIC [None]
  - TACHYARRHYTHMIA [None]
  - RETROPERITONEAL HAEMATOMA [None]
  - HAEMATOMA [None]
  - ATRIAL FIBRILLATION [None]
  - RENAL FAILURE ACUTE [None]
  - METABOLIC ACIDOSIS [None]
